FAERS Safety Report 6489829-6 (Version None)
Quarter: 2009Q4

REPORT INFORMATION
  Report Type: 
  Country: None (occurrence: None)
  Receive Date: 20091211
  Receipt Date: 20091203
  Transmission Date: 20100525
  Serious: Yes (Hospitalization)
  Sender: FDA-Public Use
  Company Number: US-BIOGENIDEC-2009BI033766

PATIENT
  Age: 48 Year
  Sex: Female

DRUGS (1)
  1. TYSABRI [Suspect]
     Indication: MULTIPLE SCLEROSIS
     Route: 042
     Dates: start: 20080229

REACTIONS (6)
  - ANXIETY [None]
  - ASTHENIA [None]
  - EPILEPSY [None]
  - FATIGUE [None]
  - MEMORY IMPAIRMENT [None]
  - MOOD ALTERED [None]
